FAERS Safety Report 25630806 (Version 5)
Quarter: 2025Q3

REPORT INFORMATION
  Report Type: Report from Study
  Country: CA (occurrence: CA)
  Receive Date: 20250801
  Receipt Date: 20250924
  Transmission Date: 20251021
  Serious: Yes (Death, Hospitalization)
  Sender: CSL BEHRING
  Company Number: CA-BEH-2025204992

PATIENT
  Age: 82 Year
  Sex: Male
  Weight: 77 kg

DRUGS (4)
  1. HIZENTRA [Suspect]
     Active Substance: HUMAN IMMUNOGLOBULIN G
     Indication: Myasthenia gravis
     Dosage: 30 G, QW
     Route: 058
     Dates: start: 20250512, end: 20250722
  2. HIZENTRA [Suspect]
     Active Substance: HUMAN IMMUNOGLOBULIN G
     Dosage: 30 G, QW
     Route: 058
     Dates: start: 20250512, end: 20250722
  3. HIZENTRA [Suspect]
     Active Substance: HUMAN IMMUNOGLOBULIN G
     Dosage: 30 G, QW
     Route: 058
     Dates: start: 20250512
  4. METFORMIN [Concomitant]
     Active Substance: METFORMIN HYDROCHLORIDE
     Indication: Product used for unknown indication
     Route: 065

REACTIONS (11)
  - Death [Fatal]
  - Hospitalisation [Unknown]
  - Myasthenia gravis [Unknown]
  - Respiratory failure [Unknown]
  - Hospitalisation [Unknown]
  - Infusion site erythema [Unknown]
  - Off label use [Unknown]
  - Confusional state [Unknown]
  - Memory impairment [Unknown]
  - Diplopia [Unknown]
  - Therapy change [Unknown]

NARRATIVE: CASE EVENT DATE: 20250101
